FAERS Safety Report 18237715 (Version 1)
Quarter: 2020Q3

REPORT INFORMATION
  Report Type: Spontaneous
  Country: DE (occurrence: DE)
  Receive Date: 20200907
  Receipt Date: 20200907
  Transmission Date: 20201103
  Serious: Yes (Hospitalization)
  Sender: FDA-Public Use
  Company Number: NVSC2020DE240670

PATIENT
  Age: 14 Year
  Sex: Male
  Weight: 39 kg

DRUGS (10)
  1. MYCOPHENOLATE MOFETIL. [Suspect]
     Active Substance: MYCOPHENOLATE MOFETIL
     Indication: RENAL TRANSPLANT
     Dosage: 800 MG, QD (2 SEPARATED DOSES)
     Route: 048
     Dates: start: 201011
  2. VIGANTOL OIL [Concomitant]
     Indication: VITAMIN D DEFICIENCY
     Dosage: 8 DRP, QD (DAILY DOSE: 8 GTT DROP(S) EVERY DAYS)
     Route: 048
     Dates: start: 201006
  3. MAGNESIUM [Concomitant]
     Active Substance: MAGNESIUM
     Indication: BLOOD MAGNESIUM ABNORMAL
     Dosage: 3.3 MMOL, QD (2 SEPARATED DOSES)
     Route: 048
     Dates: start: 20180205
  4. REDUCTO?SPEZIAL [Concomitant]
     Indication: CHRONIC KIDNEY DISEASE-MINERAL AND BONE DISORDER
     Dosage: UNK UNK, BID (602MG/360MG   1? 0 ?1 SEIT MINDESTENS 06.2019)
     Route: 048
     Dates: start: 201906
  5. EINSALPHA [Concomitant]
     Indication: CHRONIC KIDNEY DISEASE-MINERAL AND BONE DISORDER
     Dosage: 18 DRP, QD (2?G/ML TROPFEN)
     Route: 048
     Dates: start: 20100630
  6. FERRUM HAUSMANN [Concomitant]
     Indication: IRON DEFICIENCY
     Dosage: 40 DRP, QD
     Route: 048
     Dates: start: 201907
  7. PREDNISOLONE. [Suspect]
     Active Substance: PREDNISOLONE
     Indication: RENAL TRANSPLANT
     Dosage: 5 MG, QD
     Route: 048
     Dates: start: 201101
  8. TACROLIMUS. [Suspect]
     Active Substance: TACROLIMUS
     Indication: IMMUNOSUPPRESSION
     Dosage: 5.2 MG, QD (2 SEPARATED DOSES)
     Route: 048
     Dates: start: 201703
  9. BICANORM [Concomitant]
     Active Substance: SODIUM BICARBONATE
     Indication: RENAL TUBULAR ACIDOSIS
     Dosage: 3 G, QD (DAILY DOSE: 3 G GRAM(S) EVERY DAYS 3 SEPARATED DOSES)
     Route: 048
     Dates: start: 201009
  10. AMLODIPIN [Concomitant]
     Active Substance: AMLODIPINE BESYLATE
     Indication: HYPERTENSION
     Dosage: 10 MG, QD (DAILY DOSE: 10 MG MILLGRAM(S) EVERY DAYS 2 SEPARATED DOSES)
     Route: 048
     Dates: start: 20170901

REACTIONS (4)
  - Vomiting [Recovered/Resolved]
  - Gastrointestinal pain [Recovered/Resolved]
  - Erythema [Recovered/Resolved]
  - Gastroenteritis adenovirus [Recovered/Resolved]

NARRATIVE: CASE EVENT DATE: 20191125
